FAERS Safety Report 5171322-4 (Version None)
Quarter: 2006Q4

REPORT INFORMATION
  Report Type: 
  Country: None (occurrence: None)
  Receive Date: 20061213
  Receipt Date: 20051130
  Transmission Date: 20070319
  Serious: Yes (Hospitalization)
  Sender: FDA-Public Use
  Company Number: US-AMGEN-US159523

PATIENT
  Sex: Male
  Weight: 99.9 kg

DRUGS (2)
  1. ENBREL [Suspect]
     Indication: PSORIASIS
     Dates: start: 20050101, end: 20051116
  2. ASPIRIN [Concomitant]
     Dates: start: 20051201

REACTIONS (1)
  - DEMYELINATION [None]
